FAERS Safety Report 4405161-6 (Version None)
Quarter: 2004Q3

REPORT INFORMATION
  Report Type: 
  Country: None (occurrence: None)
  Receive Date: 20040723
  Receipt Date: 20040303
  Transmission Date: 20050211
  Serious: No
  Sender: FDA-Public Use
  Company Number: US-BRISTOL-MYERS SQUIBB COMPANY-12523189

PATIENT

DRUGS (1)
  1. CEFEPIME FOR INJ [Suspect]
     Route: 042

REACTIONS (2)
  - CHEST PAIN [None]
  - INJECTION SITE EXTRAVASATION [None]
